FAERS Safety Report 5408620-2 (Version None)
Quarter: 2007Q3

REPORT INFORMATION
  Report Type: 
  Country: None (occurrence: None)
  Receive Date: 20070808
  Receipt Date: 20070727
  Transmission Date: 20080115
  Serious: Yes (Other)
  Sender: FDA-Public Use
  Company Number: US-PFIZER INC-2007053367

PATIENT
  Sex: Male
  Weight: 96.6 kg

DRUGS (21)
  1. CHANTIX [Suspect]
     Indication: EX-SMOKER
     Route: 048
  2. NOVOLIN 50/50 [Concomitant]
  3. ZOLOFT [Concomitant]
  4. ZANTAC 150 [Concomitant]
  5. GABAPENTIN [Concomitant]
  6. TRAZODONE HCL [Concomitant]
  7. BUSPIRONE [Concomitant]
  8. RISPERDAL [Concomitant]
  9. SIMVASTATIN [Concomitant]
  10. LISINOPRIL [Concomitant]
  11. CYCLOBENZAPRINE HCL [Concomitant]
  12. ALL OTHER THERAPEUTIC PRODUCTS [Concomitant]
  13. ADVAIR DISKUS 100/50 [Concomitant]
  14. DICLOFENAC [Concomitant]
  15. OXYGEN [Concomitant]
  16. CLONAZEPAM [Concomitant]
  17. PRILOSEC [Concomitant]
  18. SALBUTAMOL [Concomitant]
  19. LOPID [Concomitant]
  20. INSULIN [Concomitant]
  21. LOVASTATIN [Concomitant]

REACTIONS (1)
  - FEELING JITTERY [None]
